FAERS Safety Report 18280571 (Version 2)
Quarter: 2020Q4

REPORT INFORMATION
  Report Type: Not Available
  Country: US (occurrence: US)
  Receive Date: 20200917
  Receipt Date: 20201014
  Transmission Date: 20210113
  Serious: Yes (Hospitalization)
  Sender: FDA-Public Use
  Company Number: US-NEUROCRINE BIOSCIENCES INC.-2020NBI03327

PATIENT
  Age: 84 Year
  Sex: Female

DRUGS (3)
  1. CLOZAPINE. [Concomitant]
     Active Substance: CLOZAPINE
     Indication: SCHIZOPHRENIA
     Route: 048
     Dates: start: 20200904
  2. INGREZZA [Suspect]
     Active Substance: VALBENAZINE
     Indication: TARDIVE DYSKINESIA
     Route: 048
     Dates: start: 20200904
  3. NAVANE [Concomitant]
     Active Substance: THIOTHIXENE
     Indication: SCHIZOPHRENIA

REACTIONS (1)
  - Psychiatric evaluation [Recovered/Resolved]

NARRATIVE: CASE EVENT DATE: 2020
